FAERS Safety Report 25508396 (Version 1)
Quarter: 2025Q3

REPORT INFORMATION
  Report Type: Spontaneous
  Country: US (occurrence: US)
  Receive Date: 20250703
  Receipt Date: 20250703
  Transmission Date: 20251021
  Serious: Yes (Hospitalization, Other)
  Sender: SPECGX
  Company Number: US-SPECGX-T202501152

PATIENT
  Age: 66 Year
  Sex: Male

DRUGS (11)
  1. METHADONE [Suspect]
     Active Substance: METHADONE HYDROCHLORIDE
     Indication: Product used for unknown indication
     Route: 065
  2. COCAINE [Suspect]
     Active Substance: COCAINE
     Indication: Product used for unknown indication
     Route: 065
  3. FENTANYL [Suspect]
     Active Substance: FENTANYL
     Indication: Product used for unknown indication
     Route: 065
  4. HEROIN [Suspect]
     Active Substance: DIAMORPHINE
     Indication: Product used for unknown indication
     Route: 065
  5. BENZOYLECGONINE [Suspect]
     Active Substance: BENZOYLECGONINE
     Indication: Product used for unknown indication
     Route: 065
  6. DIPHENHYDRAMINE [Suspect]
     Active Substance: DIPHENHYDRAMINE
     Indication: Product used for unknown indication
     Route: 065
  7. QUININE [Suspect]
     Active Substance: QUININE
     Indication: Product used for unknown indication
     Route: 065
  8. SUBLOCADE [Concomitant]
     Active Substance: BUPRENORPHINE
     Indication: Drug use disorder
     Route: 058
  9. SUBLOCADE [Concomitant]
     Active Substance: BUPRENORPHINE
     Indication: Overdose
  10. BRIXADI [Concomitant]
     Active Substance: BUPRENORPHINE
     Indication: Drug withdrawal syndrome
     Dosage: 32 MILLIGRAM, WEEKLY (32 MG/0.64 ML)
     Route: 058
  11. BRIXADI [Concomitant]
     Active Substance: BUPRENORPHINE
     Indication: Drug use disorder

REACTIONS (10)
  - Diastolic dysfunction [Unknown]
  - Unresponsive to stimuli [Unknown]
  - Overdose [Unknown]
  - Miosis [Unknown]
  - Somnolence [Unknown]
  - Rhinorrhoea [Unknown]
  - Drug withdrawal syndrome [Unknown]
  - Bradycardia [Unknown]
  - Dizziness [Unknown]
  - Substance use [Unknown]
